FAERS Safety Report 9427536 (Version 1)
Quarter: 2013Q3

REPORT INFORMATION
  Report Type: Report from Study
  Country: US (occurrence: US)
  Receive Date: 20130730
  Receipt Date: 20130730
  Transmission Date: 20140515
  Serious: No
  Sender: FDA-Public Use
  Company Number: US-ABBOTT-12P-163-1004850-00

PATIENT
  Age: 67 Year
  Sex: Female
  Weight: 81.72 kg

DRUGS (5)
  1. NIASPAN (COATED) [Suspect]
     Indication: CORONARY ARTERY STENOSIS
     Dosage: 1 AT BEDTIME
     Route: 048
  2. NIASPAN (COATED) [Suspect]
     Indication: BLOOD CHOLESTEROL NORMAL
     Dosage: 2 AT BEDTMIME
     Route: 048
     Dates: start: 20121103
  3. SYNTHROID [Concomitant]
     Indication: PRODUCT USED FOR UNKNOWN INDICATION
     Dosage: 0.12
     Route: 048
  4. ASPIRIN [Concomitant]
     Indication: PRODUCT USED FOR UNKNOWN INDICATION
     Dosage: 30 MIN PRIOR TO NIASPAN
     Route: 048
  5. SERTRALINE [Concomitant]
     Indication: PRODUCT USED FOR UNKNOWN INDICATION
     Route: 048

REACTIONS (3)
  - Flushing [Recovered/Resolved]
  - Local swelling [Unknown]
  - Rash [Unknown]
